FAERS Safety Report 21515376 (Version 1)
Quarter: 2022Q4

REPORT INFORMATION
  Report Type: Spontaneous
  Country: US (occurrence: None)
  Receive Date: 20221027
  Receipt Date: 20221027
  Transmission Date: 20230113
  Serious: No
  Sender: FDA-Public Use
  Company Number: US-ALVOGEN-2022-ALVOGEN-120916

PATIENT

DRUGS (2)
  1. SERTRALINE [Interacting]
     Active Substance: SERTRALINE HYDROCHLORIDE
     Indication: Product used for unknown indication
  2. LENVIMA [Interacting]
     Active Substance: LENVATINIB
     Indication: Product used for unknown indication

REACTIONS (2)
  - Palpitations [Unknown]
  - Blood pressure increased [Unknown]
